FAERS Safety Report 22958793 (Version 3)
Quarter: 2024Q2

REPORT INFORMATION
  Report Type: Spontaneous
  Country: US (occurrence: US)
  Receive Date: 20230919
  Receipt Date: 20240618
  Transmission Date: 20240716
  Serious: Yes (Other)
  Sender: FDA-Public Use
  Company Number: US-ABBVIE-5413639

PATIENT
  Sex: Male
  Weight: 72 kg

DRUGS (19)
  1. HUMIRA [Suspect]
     Active Substance: ADALIMUMAB
     Indication: Uveitis
     Dosage: FORM STRENGTH: 40 MILLIGRAM
     Route: 058
     Dates: start: 20230607
  2. GAVISCON [Concomitant]
     Active Substance: ALUMINUM HYDROXIDE\MAGNESIUM CARBONATE
     Indication: Antacid therapy
     Dosage: FREQUENCY TEXT: AS NEEDED
  3. PREDNISONE [Suspect]
     Active Substance: PREDNISONE
     Indication: Ocular vasculitis
     Dosage: 40 MILLIGRAM AND THEN TAPERED DOWN UNTIL HE STOPPED
     Route: 048
     Dates: start: 2023, end: 202309
  4. FLUTICASONE [Concomitant]
     Active Substance: FLUTICASONE
     Indication: Allergic sinusitis
  5. VITAMIN D3 [Concomitant]
     Active Substance: CHOLECALCIFEROL
     Indication: Vitamin D decreased
  6. VALACYCLOVIR [Concomitant]
     Active Substance: VALACYCLOVIR HYDROCHLORIDE
     Indication: Herpes simplex
     Dosage: FORM STRENGTH: 1 GRAM
  7. INDOMETHACIN [Concomitant]
     Active Substance: INDOMETHACIN
     Indication: Gout
     Dosage: FREQUENCY TEXT: AS NEEDED
  8. PEPCID [Concomitant]
     Active Substance: FAMOTIDINE
     Indication: Abdominal pain upper
  9. LIPITOR [Concomitant]
     Active Substance: ATORVASTATIN CALCIUM
     Indication: Blood cholesterol increased
  10. VITAMIN B12 [Concomitant]
     Active Substance: CYANOCOBALAMIN
     Indication: Vitamin B12 decreased
  11. ESCITALOPRAM [Concomitant]
     Active Substance: ESCITALOPRAM OXALATE
     Indication: Depression
  12. ACETAMINOPHEN [Concomitant]
     Active Substance: ACETAMINOPHEN
     Indication: Headache
     Dosage: ER?FREQUENCY TEXT: AS NEEDED
  13. ASPIRIN [Concomitant]
     Active Substance: ASPIRIN
     Indication: Eye haemorrhage
     Dosage: LOW DOSE
  14. ALLOPURINOL [Concomitant]
     Active Substance: ALLOPURINOL
     Indication: Gout
  15. CLOPIDOGREL [Concomitant]
     Active Substance: CLOPIDOGREL BISULFATE
     Indication: Vascular stenosis
  16. OMEPRAZOLE [Concomitant]
     Active Substance: DONEPEZIL HYDROCHLORIDE\OMEPRAZOLE\OMEPRAZOLE MAGNESIUM
     Indication: Abdominal pain upper
  17. CLARITIN [Concomitant]
     Active Substance: LORATADINE
     Indication: Allergic sinusitis
  18. PHILLIPS COLON HEALTH [Concomitant]
     Indication: Dyspepsia
  19. PREDNISOLONE [Concomitant]
     Active Substance: PREDNISOLONE
     Indication: Ocular vasculitis
     Route: 047

REACTIONS (6)
  - Retinal detachment [Recovered/Resolved]
  - Headache [Recovering/Resolving]
  - Therapeutic product effect incomplete [Unknown]
  - Diabetes mellitus [Recovered/Resolved]
  - Blood glucose increased [Recovered/Resolved]
  - Malaise [Recovering/Resolving]

NARRATIVE: CASE EVENT DATE: 20230101
